FAERS Safety Report 21612920 (Version 2)
Quarter: 2022Q4

REPORT INFORMATION
  Report Type: Spontaneous
  Country: DE (occurrence: None)
  Receive Date: 20221118
  Receipt Date: 20221229
  Transmission Date: 20230112
  Serious: Yes (Other)
  Sender: FDA-Public Use
  Company Number: 2022A373075

PATIENT

DRUGS (1)
  1. EVUSHELD [Suspect]
     Active Substance: CILGAVIMAB\TIXAGEVIMAB
     Dosage: 300 MG (150 MG TIXAGEVIMAB/150 MG CILGAVIMAB)
     Route: 030

REACTIONS (3)
  - Hypersensitivity [Unknown]
  - Nausea [Unknown]
  - Dyspnoea [Unknown]
